FAERS Safety Report 10057188 (Version 2)
Quarter: 2014Q2

REPORT INFORMATION
  Report Type: Spontaneous
  Country: US (occurrence: US)
  Receive Date: 20140403
  Receipt Date: 20140506
  Transmission Date: 20141212
  Serious: Yes (Death)
  Sender: FDA-Public Use
  Company Number: US-CELGENEUS-163-21660-14034970

PATIENT
  Age: 53 Year
  Sex: Female

DRUGS (2)
  1. ABRAXANE [Suspect]
     Indication: NON-SMALL CELL LUNG CANCER METASTATIC
     Route: 041
     Dates: start: 20130903, end: 20140120
  2. CISPLATIN [Concomitant]
     Indication: PRODUCT USED FOR UNKNOWN INDICATION
     Route: 041
     Dates: start: 20140106

REACTIONS (1)
  - Non-small cell lung cancer metastatic [Fatal]
